FAERS Safety Report 6294660-0 (Version None)
Quarter: 2009Q3

REPORT INFORMATION
  Report Type: 
  Country: None (occurrence: None)
  Receive Date: 20090803
  Receipt Date: 20090727
  Transmission Date: 20100115
  Serious: Yes (Death, Hospitalization, Congenital Anomaly)
  Sender: FDA-Public Use
  Company Number: A0650478A

PATIENT
  Sex: Male
  Weight: 3.4 kg

DRUGS (6)
  1. PAXIL CR [Suspect]
     Indication: DRUG USE FOR UNKNOWN INDICATION
  2. MULTI-VITAMIN [Concomitant]
  3. ZOFRAN [Concomitant]
  4. SUCRALFATE [Concomitant]
  5. COMPAZINE [Concomitant]
  6. VITAMIN AND MINERAL PRENATAL SUPPLEMENT W/ FOLIC ACID CAP [Concomitant]

REACTIONS (7)
  - ATRIAL SEPTAL DEFECT [None]
  - CONGENITAL DIAPHRAGMATIC HERNIA [None]
  - DRUG EXPOSURE DURING PREGNANCY [None]
  - PATENT DUCTUS ARTERIOSUS [None]
  - PERSISTENT FOETAL CIRCULATION [None]
  - PNEUMOTHORAX [None]
  - PULMONARY HYPOPLASIA [None]
